FAERS Safety Report 5732998-3 (Version None)
Quarter: 2008Q2

REPORT INFORMATION
  Report Type: 
  Country: None (occurrence: None)
  Receive Date: 20080509
  Receipt Date: 20080430
  Transmission Date: 20081010
  Serious: Yes (Other)
  Sender: FDA-Public Use
  Company Number: BR-JNJFOC-20080500053

PATIENT
  Age: 61 Year
  Sex: Female
  Weight: 70 kg

DRUGS (4)
  1. SPORANOX [Suspect]
     Indication: ONYCHOMYCOSIS
     Dosage: 1 IN THE MORNING AND 1 AT NIGHT FOR 7 DAYS, THEN 3 WEEKS PAUSE, FOR MORE THAN 6 MONTHS.
     Route: 048
  2. TOPIRAMATE [Concomitant]
     Indication: EPILEPSY
     Dosage: ONE AND A HALF 100MG TABLETS IN THE MORNING, AND 2 100MG TABLETS AT NIGHT
     Route: 065
  3. EPHYNAL [Concomitant]
     Indication: DRUG USE FOR UNKNOWN INDICATION
     Route: 065
  4. GINKGO BILOBA [Concomitant]
     Indication: SUDDEN HEARING LOSS
     Dosage: 1-2 DOSES A DAY
     Route: 065

REACTIONS (3)
  - DEPRESSION [None]
  - OEDEMA PERIPHERAL [None]
  - WEIGHT INCREASED [None]
